FAERS Safety Report 7044962-5 (Version None)
Quarter: 2010Q4

REPORT INFORMATION
  Report Type: 
  Country: None (occurrence: None)
  Receive Date: 20101014
  Receipt Date: 20101011
  Transmission Date: 20110411
  Serious: Yes (Other)
  Sender: FDA-Public Use
  Company Number: FR-BRISTOL-MYERS SQUIBB COMPANY-15331770

PATIENT
  Age: 37 Year
  Sex: Male

DRUGS (6)
  1. ABILIFY [Suspect]
     Indication: SCHIZOPHRENIA
     Dosage: 1 DF - 1 TABS
     Route: 048
     Dates: start: 20090715
  2. CLOZAPINE [Suspect]
     Indication: SCHIZOPHRENIA
     Route: 048
     Dates: start: 20081031
  3. DEPAKOTE [Concomitant]
     Route: 048
  4. TRIHEXYPHENIDYL HCL [Concomitant]
     Dosage: PARKINANE LP 5
     Route: 048
     Dates: start: 20081001
  5. TRANXENE [Concomitant]
     Route: 048
     Dates: start: 20081101
  6. FENOFIBRATE [Concomitant]
     Route: 048
     Dates: start: 20090924

REACTIONS (1)
  - MYOCARDITIS [None]
